FAERS Safety Report 13918545 (Version 4)
Quarter: 2018Q1

REPORT INFORMATION
  Report Type: Report from Study
  Country: US (occurrence: US)
  Receive Date: 20170829
  Receipt Date: 20180209
  Transmission Date: 20180508
  Serious: Yes (Other)
  Sender: FDA-Public Use
  Company Number: PHEH2017US027138

PATIENT
  Age: 64 Year
  Sex: Female

DRUGS (1)
  1. SIMBRINZA [Suspect]
     Active Substance: BRIMONIDINE TARTRATE\BRINZOLAMIDE
     Indication: GLAUCOMA
     Dosage: UNK, BID (OU)
     Route: 061
     Dates: start: 20160725, end: 20170322

REACTIONS (4)
  - Hypersensitivity [Unknown]
  - Eye oedema [Unknown]
  - Conjunctivitis allergic [Recovering/Resolving]
  - Eyelid oedema [Unknown]

NARRATIVE: CASE EVENT DATE: 20170315
